FAERS Safety Report 25365202 (Version 2)
Quarter: 2025Q2

REPORT INFORMATION
  Report Type: Spontaneous
  Country: US (occurrence: US)
  Receive Date: 20250527
  Receipt Date: 20250606
  Transmission Date: 20250716
  Serious: No
  Sender: SANOFI AVENTIS
  Company Number: US-SANOFI-02534716

PATIENT
  Age: 67 Year
  Sex: Male

DRUGS (3)
  1. DUPIXENT [Suspect]
     Active Substance: DUPILUMAB
     Indication: Dermatitis atopic
     Route: 058
     Dates: start: 202502, end: 202502
  2. DUPIXENT [Suspect]
     Active Substance: DUPILUMAB
     Dosage: 300 MG, QOW
     Route: 058
     Dates: start: 2025
  3. HUMIRA [Concomitant]
     Active Substance: ADALIMUMAB

REACTIONS (10)
  - Injection site pain [Unknown]
  - Injection site swelling [Unknown]
  - Eczema [Unknown]
  - Swelling of eyelid [Unknown]
  - Swelling face [Unknown]
  - Rash pruritic [Unknown]
  - Erythema [Unknown]
  - Eyelid skin dryness [Unknown]
  - Dry skin [Unknown]
  - Eyelids pruritus [Unknown]

NARRATIVE: CASE EVENT DATE: 20250201
